FAERS Safety Report 20754457 (Version 1)
Quarter: 2022Q2

REPORT INFORMATION
  Report Type: Spontaneous
  Country: US (occurrence: None)
  Receive Date: 20220426
  Receipt Date: 20220426
  Transmission Date: 20220721
  Serious: No
  Sender: FDA-Public Use
  Company Number: US-ROCHE-2961169

PATIENT
  Sex: Male

DRUGS (7)
  1. ESBRIET [Suspect]
     Active Substance: PIRFENIDONE
     Indication: Pulmonary fibrosis
     Route: 048
     Dates: start: 20160920
  2. ESBRIET [Suspect]
     Active Substance: PIRFENIDONE
     Indication: Idiopathic pulmonary fibrosis
  3. ESBRIET [Suspect]
     Active Substance: PIRFENIDONE
     Indication: Pulmonary hypertension
  4. ESBRIET [Suspect]
     Active Substance: PIRFENIDONE
     Indication: Interstitial lung disease
  5. ESBRIET [Suspect]
     Active Substance: PIRFENIDONE
     Indication: Lung disorder
  6. ESBRIET [Suspect]
     Active Substance: PIRFENIDONE
     Indication: Hypoxia
  7. TYVASO [Concomitant]
     Active Substance: TREPROSTINIL
     Dosage: TD 300 DEVICE

REACTIONS (2)
  - Fatigue [Unknown]
  - Asthenia [Unknown]
